FAERS Safety Report 4319923-7 (Version None)
Quarter: 2004Q1

REPORT INFORMATION
  Report Type: 
  Country: None (occurrence: None)
  Receive Date: 20040316
  Receipt Date: 20040302
  Transmission Date: 20041129
  Serious: Yes (Other)
  Sender: FDA-Public Use
  Company Number: 2004202228IT

PATIENT
  Age: 40 Year
  Sex: Male

DRUGS (11)
  1. DEPO-MEDROL [Suspect]
     Dosage: 125 MG EVERY 12 HOURS, IV
     Route: 042
  2. CISATRACURIUM (CISATRACURIUM) [Suspect]
     Dosage: 1.42-5.75UG/KG MIN
  3. AMBROXOL [Concomitant]
  4. ENOXAPARIN SODIUM [Concomitant]
  5. RANITIDINE [Concomitant]
  6. FUROSEMIDE [Concomitant]
  7. MEROPENEM (MEROPENEM) [Concomitant]
  8. TEICOPLANIN [Concomitant]
  9. MIDAZOLAM HCL [Concomitant]
  10. MORPHINE [Concomitant]
  11. PROPOFOL [Concomitant]

REACTIONS (5)
  - AREFLEXIA [None]
  - ASTHENIA [None]
  - PARALYSIS FLACCID [None]
  - POLYNEUROPATHY [None]
  - QUADRIPLEGIA [None]
